FAERS Safety Report 5736571-2 (Version None)
Quarter: 2008Q2

REPORT INFORMATION
  Report Type: 
  Country: None (occurrence: None)
  Receive Date: 20080506
  Receipt Date: 20070911
  Transmission Date: 20081010
  Serious: Yes (Death)
  Sender: FDA-Public Use
  Company Number: T200701096

PATIENT
  Sex: Male

DRUGS (1)
  1. METHADOSE [Suspect]
     Indication: DRUG DEPENDENCE

REACTIONS (4)
  - ABNORMAL BEHAVIOUR [None]
  - HALLUCINATION [None]
  - INCOHERENT [None]
  - RESPIRATORY ARREST [None]
